FAERS Safety Report 8370727-8 (Version None)
Quarter: 2012Q2

REPORT INFORMATION
  Report Type: 
  Country: None (occurrence: None)
  Receive Date: 20120518
  Receipt Date: 20120508
  Transmission Date: 20120825
  Serious: No
  Sender: FDA-Public Use
  Company Number: US-ASTRAZENECA-2012SE16485

PATIENT
  Age: 74 Year
  Sex: Female

DRUGS (2)
  1. NEXIUM [Suspect]
     Route: 048
  2. PRILOSEC [Concomitant]

REACTIONS (7)
  - FLATULENCE [None]
  - BLOOD CHOLESTEROL ABNORMAL [None]
  - LOW DENSITY LIPOPROTEIN INCREASED [None]
  - PAIN [None]
  - MULTIPLE ALLERGIES [None]
  - INTENTIONAL DRUG MISUSE [None]
  - DYSPNOEA [None]
